FAERS Safety Report 5165330-7 (Version None)
Quarter: 2006Q4

REPORT INFORMATION
  Report Type: 
  Country: None (occurrence: None)
  Receive Date: 20061206
  Receipt Date: 20061114
  Transmission Date: 20070319
  Serious: Yes (Hospitalization)
  Sender: FDA-Public Use
  Company Number: US-BRISTOL-MYERS SQUIBB COMPANY-13578539

PATIENT
  Age: 70 Year
  Sex: Female

DRUGS (8)
  1. IRBESARTAN [Suspect]
     Indication: CARDIAC FAILURE
     Route: 048
     Dates: start: 20021003
  2. BLINDED: PLACEBO [Suspect]
     Indication: CARDIAC FAILURE
     Dates: start: 20020905
  3. TOPROL-XL [Concomitant]
  4. LASIX [Concomitant]
  5. LEXAPRO [Concomitant]
  6. COUMADIN [Concomitant]
  7. RANITIDINE [Concomitant]
  8. SPIRONOLACTONE [Concomitant]

REACTIONS (1)
  - DYSPNOEA [None]
